FAERS Safety Report 4485842-9 (Version None)
Quarter: 2004Q3

REPORT INFORMATION
  Report Type: 
  Country: None (occurrence: None)
  Receive Date: 20040921
  Receipt Date: 20031010
  Transmission Date: 20050211
  Serious: Yes (Death, Hospitalization)
  Sender: FDA-Public Use
  Company Number: 163-20785-03100243

PATIENT
  Age: 59 Year
  Sex: Female

DRUGS (8)
  1. THALOMID [Suspect]
     Indication: MULTIPLE MYELOMA
     Dosage: 400 MG, QD, ORAL
     Route: 048
     Dates: start: 20030328, end: 20030504
  2. DEXAMETHASONE [Suspect]
     Indication: MULTIPLE MYELOMA
     Dosage: 40 MG, QD, D1-4, ORAL
     Route: 048
     Dates: start: 20030418, end: 20030421
  3. CYCLOPHOSPHAMIDE [Suspect]
     Indication: MULTIPLE MYELOMA
     Dosage: 720 MG, QD, INTRAVENOUS
     Route: 042
     Dates: start: 20030418, end: 20030421
  4. ETOPOSIDE [Suspect]
     Indication: MULTIPLE MYELOMA
     Dosage: 72 MG, QD, INTRAVENOUS
     Route: 042
     Dates: start: 20030418, end: 20030421
  5. CISPLATIN [Suspect]
     Indication: MULTIPLE MYELOMA
     Dosage: 27 MG, QD, INTRAVENOUS
     Route: 042
     Dates: start: 20030418, end: 20030421
  6. OXYCONTIN [Concomitant]
  7. CELEXA [Concomitant]
  8. HYDROCODONE (HYDROCODONE) [Concomitant]

REACTIONS (2)
  - DEATH [None]
  - OEDEMA [None]
